FAERS Safety Report 15281984 (Version 1)
Quarter: 2018Q3

REPORT INFORMATION
  Report Type: Spontaneous
  Country: ES (occurrence: ES)
  Receive Date: 20180815
  Receipt Date: 20180815
  Transmission Date: 20181010
  Serious: Yes (Hospitalization)
  Sender: FDA-Public Use
  Company Number: PHHY2018ES073993

PATIENT
  Age: 75 Year
  Sex: Female

DRUGS (1)
  1. RIMSTAR [Suspect]
     Active Substance: ETHAMBUTOL\ISONIAZID\PYRAZINAMIDE\RIFAMYCIN
     Indication: LYMPH NODE TUBERCULOSIS
     Dosage: 400 MG, UNK
     Route: 048
     Dates: start: 20170225, end: 20170322

REACTIONS (2)
  - Hepatitis [Recovered/Resolved]
  - Hyperbilirubinaemia [Recovered/Resolved]

NARRATIVE: CASE EVENT DATE: 20170322
